FAERS Safety Report 22636033 (Version 1)
Quarter: 2023Q2

REPORT INFORMATION
  Report Type: Report from Study
  Country: DE (occurrence: DE)
  Receive Date: 20230623
  Receipt Date: 20230623
  Transmission Date: 20230722
  Serious: Yes (Hospitalization)
  Sender: FDA-Public Use
  Company Number: DE-ABBVIE-5174098

PATIENT
  Age: 54 Year
  Sex: Male
  Weight: 85 kg

DRUGS (3)
  1. HUMIRA [Suspect]
     Active Substance: ADALIMUMAB
     Indication: Psoriasis
     Route: 058
  2. SKYRIZI [Suspect]
     Active Substance: RISANKIZUMAB-RZAA
     Indication: Psoriasis
     Route: 058
     Dates: start: 20220720, end: 20230209
  3. SKYRIZI [Suspect]
     Active Substance: RISANKIZUMAB-RZAA
     Dosage: START DATE 2023
     Route: 058

REACTIONS (14)
  - Psoriasis [Recovered/Resolved]
  - Mental disorder [Unknown]
  - Mobility decreased [Recovering/Resolving]
  - Anxiety [Unknown]
  - Eczema [Unknown]
  - Dermatitis contact [Unknown]
  - Skin erosion [Unknown]
  - Psoriasis [Recovered/Resolved]
  - Depression [Unknown]
  - Gait disturbance [Recovering/Resolving]
  - Pain [Recovering/Resolving]
  - Tremor [Unknown]
  - Illness [Unknown]
  - Impaired work ability [Unknown]

NARRATIVE: CASE EVENT DATE: 20221007
